FAERS Safety Report 24754686 (Version 2)
Quarter: 2025Q3

REPORT INFORMATION
  Report Type: Report from Study
  Country: US (occurrence: US)
  Receive Date: 20241219
  Receipt Date: 20250803
  Transmission Date: 20251020
  Serious: Yes (Other)
  Sender: ALEXION PHARMACEUTICALS
  Company Number: US-ALXN-202412USA010033US

PATIENT
  Sex: Female

DRUGS (1)
  1. STRENSIQ [Suspect]
     Active Substance: ASFOTASE ALFA
     Route: 065

REACTIONS (34)
  - Anxiety [Unknown]
  - Depression [Unknown]
  - Poor dental condition [Unknown]
  - Short stature [Unknown]
  - Pneumonia [Unknown]
  - Muscular weakness [Unknown]
  - Fatigue [Unknown]
  - Myalgia [Unknown]
  - Arthralgia [Unknown]
  - Bone pain [Unknown]
  - Chondrocalcinosis [Unknown]
  - Nephrocalcinosis [Unknown]
  - Impaired healing [Unknown]
  - Sleep disorder [Unknown]
  - Osteoporosis [Unknown]
  - Hyperparathyroidism [Unknown]
  - Macular oedema [Unknown]
  - Cataract [Unknown]
  - Eyelid ptosis [Unknown]
  - Osteoarthritis [Unknown]
  - Glomerular filtration rate decreased [Unknown]
  - Blood urea increased [Unknown]
  - Blood parathyroid hormone abnormal [Unknown]
  - Glycosylated haemoglobin increased [Unknown]
  - Light chain analysis abnormal [Unknown]
  - Transferrin saturation decreased [Unknown]
  - Blood iron decreased [Unknown]
  - Urine albumin/creatinine ratio abnormal [Unknown]
  - Blood immunoglobulin G decreased [Unknown]
  - Joint space narrowing [Unknown]
  - Fracture [Unknown]
  - Pseudofracture [Unknown]
  - Hypogammaglobulinaemia [Unknown]
  - Laboratory test abnormal [Unknown]

NARRATIVE: CASE EVENT DATE: 20240619
